FAERS Safety Report 5446094-6 (Version None)
Quarter: 2007Q3

REPORT INFORMATION
  Report Type: 
  Country: None (occurrence: None)
  Receive Date: 20070904
  Receipt Date: 20070817
  Transmission Date: 20080115
  Serious: Yes (Other)
  Sender: FDA-Public Use
  Company Number: 001#1#2007-00535

PATIENT
  Sex: Male

DRUGS (3)
  1. NEUPRO-4MG/24 H (ROTIGOTINE) [Suspect]
     Indication: PARKINSONISM
     Dosage: 2 MG/24 H (2 MG/24 H 1 IN 1 DAY (S)) TRANSDERMAL
     Route: 062
     Dates: start: 20070426
  2. CLOPIDOGREL BISULFATE [Concomitant]
  3. CANDESARTAN CILEXETIL  (CANDESARTAN CILEXETIL) [Concomitant]

REACTIONS (1)
  - RETINAL DETACHMENT [None]
